FAERS Safety Report 21401772 (Version 7)
Quarter: 2022Q4

REPORT INFORMATION
  Report Type: Report from Study
  Country: CN (occurrence: CN)
  Receive Date: 20221003
  Receipt Date: 20221110
  Transmission Date: 20230112
  Serious: Yes (Death, Life-Threatening)
  Sender: FDA-Public Use
  Company Number: CN-NOVARTISPH-NVSC2022CN222156

PATIENT
  Age: 41 Year
  Sex: Male
  Weight: 62.5 kg

DRUGS (7)
  1. ASCIMINIB [Suspect]
     Active Substance: ASCIMINIB
     Indication: Chronic myeloid leukaemia
     Dosage: 40 MG, BID
     Route: 048
     Dates: start: 20220624
  2. URAPIDIL [Concomitant]
     Active Substance: URAPIDIL
     Indication: Blood pressure increased
     Dosage: UNK
     Route: 065
     Dates: start: 20220930, end: 20220930
  3. CALCIUM CHLORIDE\POTASSIUM CHLORIDE\SODIUM CHLORIDE [Concomitant]
     Active Substance: CALCIUM CHLORIDE\POTASSIUM CHLORIDE\SODIUM CHLORIDE
     Indication: Hypokalaemia
     Dosage: UNK
     Route: 065
     Dates: start: 20220930
  4. LEVOFLOXACIN [Concomitant]
     Active Substance: LEVOFLOXACIN
     Indication: Upper respiratory tract infection
     Dosage: UNK
     Route: 065
     Dates: start: 20220806, end: 20220806
  5. IBUPROFEN [Concomitant]
     Active Substance: IBUPROFEN
     Indication: Upper respiratory tract infection
     Dosage: UNK
     Route: 065
     Dates: start: 20220805, end: 20220806
  6. IBUPROFEN [Concomitant]
     Active Substance: IBUPROFEN
     Dosage: UNK
     Route: 065
     Dates: start: 20220827, end: 20220828
  7. POTASSIUM CHLORIDE [Concomitant]
     Active Substance: POTASSIUM CHLORIDE
     Indication: Hypokalaemia
     Dosage: UNK
     Route: 065
     Dates: start: 20220930

REACTIONS (2)
  - Haemorrhage intracranial [Fatal]
  - Platelet count decreased [Fatal]

NARRATIVE: CASE EVENT DATE: 20220825
